FAERS Safety Report 11577811 (Version 1)
Quarter: 2015Q3

REPORT INFORMATION
  Report Type: Spontaneous
  Country: US (occurrence: US)
  Receive Date: 20150916
  Receipt Date: 20150916
  Transmission Date: 20151125
  Serious: No
  Sender: FDA-Public Use
  Company Number: US-ELI_LILLY_AND_COMPANY-US201306006438

PATIENT
  Sex: Female

DRUGS (3)
  1. HUMALOG [Suspect]
     Active Substance: INSULIN LISPRO
     Dosage: UNK UNK, UNKNOWN
  2. LEVEMIR [Interacting]
     Active Substance: INSULIN DETEMIR
     Dosage: UNK, UNKNOWN
  3. NOVOLOG [Concomitant]
     Active Substance: INSULIN ASPART

REACTIONS (5)
  - Injection site warmth [Not Recovered/Not Resolved]
  - Injection site swelling [Recovering/Resolving]
  - Drug hypersensitivity [Unknown]
  - Drug interaction [Unknown]
  - Injection site mass [Not Recovered/Not Resolved]
